FAERS Safety Report 8254729-8 (Version None)
Quarter: 2012Q1

REPORT INFORMATION
  Report Type: 
  Country: None (occurrence: None)
  Receive Date: 20120322
  Receipt Date: 20120118
  Transmission Date: 20120608
  Serious: Yes (Hospitalization)
  Sender: FDA-Public Use
  Company Number: UTC-013676

PATIENT
  Age: 74 Year
  Sex: Female
  Weight: 90.9 kg

DRUGS (5)
  1. TYVASO [Suspect]
     Indication: PULMONARY ARTERIAL HYPERTENSION
     Dosage: 18-54 MICROGRAMS (4 IN 1 D), INHALATION, 288 (72, 4 IN 1 D), INHALATION
     Route: 055
  2. TYVASO [Suspect]
     Indication: PULMONARY ARTERIAL HYPERTENSION
     Dosage: 18-54 MICROGRAMS (4 IN 1 D), INHALATION, 288 (72, 4 IN 1 D), INHALATION
     Route: 055
     Dates: start: 20100929, end: 20110105
  3. TYVASO [Suspect]
     Indication: PULMONARY ARTERIAL HYPERTENSION
     Dosage: 18-54 MICROGRAMS (4 IN 1 D), INHALATION, 288 (72, 4 IN 1 D), INHALATION
     Route: 055
     Dates: start: 20101004
  4. REVATIO [Concomitant]
  5. DIURETICS (DIURETICS) [Concomitant]

REACTIONS (2)
  - SYNCOPE [None]
  - TREATMENT NONCOMPLIANCE [None]
